FAERS Safety Report 8464253-5 (Version None)
Quarter: 2012Q2

REPORT INFORMATION
  Report Type: 
  Country: None (occurrence: None)
  Receive Date: 20120625
  Receipt Date: 20120619
  Transmission Date: 20120825
  Serious: Yes (Other)
  Sender: FDA-Public Use
  Company Number: US-PFIZER INC-2012148396

PATIENT
  Sex: Female

DRUGS (2)
  1. EFFEXOR XR [Suspect]
     Dosage: 75 MG, 1X/DAY
  2. EFFEXOR XR [Suspect]
     Dosage: 37.5 MG, 1X/DAY

REACTIONS (2)
  - BREAST CANCER [None]
  - DRUG WITHDRAWAL SYNDROME [None]
